FAERS Safety Report 4916431-7 (Version None)
Quarter: 2006Q1

REPORT INFORMATION
  Report Type: 
  Country: None (occurrence: None)
  Receive Date: 20060214
  Receipt Date: 20060202
  Transmission Date: 20060701
  Serious: No
  Sender: FDA-Public Use
  Company Number: 430001L06CAN

PATIENT
  Age: 82 Year
  Sex: Male

DRUGS (2)
  1. NOVANTRONE [Suspect]
     Indication: PROSTATE CANCER METASTATIC
  2. PREDNISONE                                   (PREDNISONE  /00044701/) [Suspect]
     Indication: PROSTATE CANCER METASTATIC

REACTIONS (11)
  - ABSCESS [None]
  - BACTERIA BODY FLUID IDENTIFIED [None]
  - NAIL BED BLEEDING [None]
  - NAIL DISCOLOURATION [None]
  - NAIL DISORDER [None]
  - OEDEMA PERIPHERAL [None]
  - ONYCHOLYSIS [None]
  - PARONYCHIA [None]
  - PURULENT DISCHARGE [None]
  - PYOGENIC GRANULOMA [None]
  - STAPHYLOCOCCAL INFECTION [None]
